FAERS Safety Report 10144184 (Version 1)
Quarter: 2014Q2

REPORT INFORMATION
  Report Type: Spontaneous
  Country: NO (occurrence: NO)
  Receive Date: 20140430
  Receipt Date: 20140430
  Transmission Date: 20141212
  Serious: Yes (Hospitalization, Other)
  Sender: FDA-Public Use
  Company Number: PHHY2014NO049791

PATIENT
  Age: 50 Year
  Sex: Male

DRUGS (11)
  1. METHYLPREDNISOLONE [Suspect]
     Indication: GLOMERULONEPHRITIS
     Dosage: 1 G
     Route: 042
  2. METHYLPREDNISOLONE [Suspect]
     Indication: ANTI-GLOMERULAR BASEMENT MEMBRANE ANTIBODY POSITIVE
  3. ERYTHROMYCIN [Suspect]
     Indication: RESPIRATORY TRACT INFECTION
  4. PREDNISONE [Suspect]
     Indication: GLOMERULONEPHRITIS
     Dosage: 60 MG
     Route: 048
  5. PREDNISONE [Suspect]
     Indication: ANTI-GLOMERULAR BASEMENT MEMBRANE ANTIBODY POSITIVE
     Dosage: 30 MG
     Route: 048
  6. CEFOTAXIME [Suspect]
     Indication: SEPSIS
  7. AZATHIOPRINE [Suspect]
     Dosage: 50 MG
  8. SULFAMETHOXAZOLE+TRIMETHOPRIM [Suspect]
     Indication: ANTIFUNGAL PROPHYLAXIS
     Dosage: 1 DF
  9. METRONIDAZOL BAXTER VIAFLO 5 MG/ML INFUSJONSV?SKE, OPPL?SNING [Suspect]
     Indication: CLOSTRIDIUM COLITIS
  10. ENDOXAN [Suspect]
     Indication: GLOMERULONEPHRITIS
     Dosage: 100 MG
     Route: 048
  11. ENDOXAN [Suspect]
     Indication: ANTI-GLOMERULAR BASEMENT MEMBRANE ANTIBODY POSITIVE
     Dosage: 50 MG
     Route: 048

REACTIONS (6)
  - Diarrhoea [Recovered/Resolved]
  - Leukopenia [Recovered/Resolved]
  - Bone marrow failure [Recovered/Resolved]
  - Neutropenia [Recovered/Resolved]
  - Thrombosis [Recovered/Resolved]
  - Cytomegalovirus infection [Recovered/Resolved]
